FAERS Safety Report 4565325-8 (Version None)
Quarter: 2005Q1

REPORT INFORMATION
  Report Type: 
  Country: None (occurrence: None)
  Receive Date: 20050127
  Receipt Date: 20050127
  Transmission Date: 20050727
  Serious: Yes (Life-Threatening, Hospitalization)
  Sender: FDA-Public Use
  Company Number: None

PATIENT
  Age: 64 Year
  Sex: Male
  Weight: 103.9 kg

DRUGS (7)
  1. INSULIN [Suspect]
  2. OMEPRAZOLE [Concomitant]
  3. FELODIPINE [Concomitant]
  4. METOPROLOL [Concomitant]
  5. TERAZOSIN [Concomitant]
  6. HEPARIN [Concomitant]
  7. FUROSEMIDE [Concomitant]

REACTIONS (1)
  - HYPOGLYCAEMIA [None]
